FAERS Safety Report 9343385 (Version 6)
Quarter: 2018Q4

REPORT INFORMATION
  Report Type: Spontaneous
  Country: CA (occurrence: CA)
  Receive Date: 20130612
  Receipt Date: 20181226
  Transmission Date: 20190205
  Serious: Yes (Hospitalization, Other)
  Sender: FDA-Public Use
  Company Number: CA-ROCHE-1235413

PATIENT
  Age: 44 Year
  Sex: Female

DRUGS (3)
  1. XOLAIR [Suspect]
     Active Substance: OMALIZUMAB
     Indication: ASTHMA
     Route: 058
     Dates: start: 20051112
  2. XOLAIR [Suspect]
     Active Substance: OMALIZUMAB
     Route: 058
     Dates: start: 20181122
  3. XOLAIR [Suspect]
     Active Substance: OMALIZUMAB
     Route: 058

REACTIONS (5)
  - Gastritis [Unknown]
  - Gastrointestinal infection [Unknown]
  - Cardiac disorder [Recovered/Resolved]
  - Sinusitis [Unknown]
  - Pneumonia [Unknown]

NARRATIVE: CASE EVENT DATE: 20130518
